FAERS Safety Report 4476325-0 (Version None)
Quarter: 2004Q4

REPORT INFORMATION
  Report Type: 
  Country: None (occurrence: None)
  Receive Date: 20041016
  Receipt Date: 20041006
  Transmission Date: 20050328
  Serious: Yes (Death, Hospitalization)
  Sender: FDA-Public Use
  Company Number: AU-MERCK-0410AUS00097

PATIENT
  Age: 86 Year
  Sex: Female

DRUGS (11)
  1. ALENDRONATE SODIUM [Concomitant]
     Route: 065
  2. AMITRIPTYLINE HYDROCHLORIDE [Concomitant]
     Route: 065
  3. ASPIRIN [Concomitant]
     Route: 065
  4. FUROSEMIDE [Concomitant]
     Route: 065
  5. LEVOTHYROXINE SODIUM [Concomitant]
     Route: 065
  6. METOCLOPRAMIDE [Concomitant]
     Route: 065
  7. OLANZAPINE [Concomitant]
     Route: 065
  8. PIMECLONE HYDROCHLORIDE [Concomitant]
     Route: 065
  9. VIOXX [Suspect]
     Route: 048
  10. TEMAZEPAM [Concomitant]
     Route: 065
  11. TIRATRICOL [Concomitant]
     Route: 065

REACTIONS (4)
  - CARDIAC FAILURE CONGESTIVE [None]
  - CEREBROVASCULAR ACCIDENT [None]
  - MYOCARDIAL ISCHAEMIA [None]
  - VENTRICULAR DYSFUNCTION [None]
